FAERS Safety Report 25162944 (Version 1)
Quarter: 2025Q2

REPORT INFORMATION
  Report Type: Spontaneous
  Country: US (occurrence: US)
  Receive Date: 20250404
  Receipt Date: 20250404
  Transmission Date: 20250717
  Serious: Yes (Other)
  Sender: BLUEPRINT MEDICINES
  Company Number: US-Blueprint Medicines Corporation-2025-AER-00632

PATIENT
  Age: 78 Year
  Sex: Male

DRUGS (1)
  1. AYVAKIT [Suspect]
     Active Substance: AVAPRITINIB
     Indication: Malignant mast cell neoplasm
     Route: 065
     Dates: start: 20240122

REACTIONS (11)
  - Nephrotic syndrome [Unknown]
  - Nephrolithiasis [Unknown]
  - Asthenia [Unknown]
  - Weight increased [Unknown]
  - Abdominal pain upper [Recovered/Resolved]
  - Blood creatine increased [Unknown]
  - Fluid retention [Unknown]
  - Cognitive disorder [Unknown]
  - Ejection fraction abnormal [Unknown]
  - Brain natriuretic peptide increased [Unknown]
  - Off label use [Unknown]

NARRATIVE: CASE EVENT DATE: 20240122
